FAERS Safety Report 9879581 (Version 2)
Quarter: 2014Q1

REPORT INFORMATION
  Report Type: Spontaneous
  Country: JO (occurrence: JO)
  Receive Date: 20140206
  Receipt Date: 20140310
  Transmission Date: 20141002
  Serious: Yes (Other)
  Sender: FDA-Public Use
  Company Number: JO-ALLERGAN-1402218US

PATIENT
  Age: 60 Year
  Sex: Male

DRUGS (1)
  1. PRED FORTE [Suspect]
     Indication: POSTOPERATIVE CARE
     Dosage: UNK
     Route: 047

REACTIONS (2)
  - Fibrin deposition on lens postoperative [Recovering/Resolving]
  - Intraocular pressure increased [Unknown]
